FAERS Safety Report 7961913-7 (Version None)
Quarter: 2011Q4

REPORT INFORMATION
  Report Type: 
  Country: None (occurrence: None)
  Receive Date: 20111207
  Receipt Date: 20111130
  Transmission Date: 20120403
  Serious: Yes (Hospitalization, Other)
  Sender: FDA-Public Use
  Company Number: US-BAXTER-2011BH036841

PATIENT
  Age: 11 Year
  Sex: Female
  Weight: 30 kg

DRUGS (10)
  1. ZYRTEC [Concomitant]
     Indication: PRODUCT USED FOR UNKNOWN INDICATION
     Route: 048
     Dates: start: 20111111, end: 20111111
  2. MIRALAX [Concomitant]
     Indication: PRODUCT USED FOR UNKNOWN INDICATION
     Route: 048
     Dates: start: 20110101
  3. GAMMAGARD LIQUID [Suspect]
     Indication: IMMUNODEFICIENCY COMMON VARIABLE
     Route: 058
     Dates: start: 20111118, end: 20111118
  4. ADDERALL 5 [Concomitant]
     Indication: PRODUCT USED FOR UNKNOWN INDICATION
     Route: 048
     Dates: start: 20110101
  5. IRON [Concomitant]
     Indication: PRODUCT USED FOR UNKNOWN INDICATION
     Route: 065
     Dates: start: 20110101
  6. LORATADINE [Concomitant]
     Indication: PRODUCT USED FOR UNKNOWN INDICATION
     Route: 048
     Dates: start: 20110101
  7. MELATONIN [Concomitant]
     Indication: PRODUCT USED FOR UNKNOWN INDICATION
     Route: 048
     Dates: start: 20100101
  8. GAMMAGARD LIQUID [Suspect]
     Route: 058
     Dates: start: 20111111, end: 20111111
  9. MOBIC [Concomitant]
     Indication: PRODUCT USED FOR UNKNOWN INDICATION
     Route: 048
     Dates: start: 20110101
  10. MOTRIN [Concomitant]
     Indication: PREMEDICATION
     Route: 048
     Dates: start: 20111118, end: 20111118

REACTIONS (12)
  - SOMNOLENCE [None]
  - PAIN [None]
  - HEADACHE [None]
  - FATIGUE [None]
  - FALL [None]
  - LACERATION [None]
  - LOSS OF CONSCIOUSNESS [None]
  - ABDOMINAL PAIN UPPER [None]
  - RASH [None]
  - URTICARIA [None]
  - RASH PRURITIC [None]
  - CONTUSION [None]
